FAERS Safety Report 6475137-6 (Version None)
Quarter: 2009Q4

REPORT INFORMATION
  Report Type: 
  Country: None (occurrence: None)
  Receive Date: 20091204
  Receipt Date: 20090427
  Transmission Date: 20100525
  Serious: Yes (Other)
  Sender: FDA-Public Use
  Company Number: US-ELI_LILLY_AND_COMPANY-US200903002143

PATIENT
  Age: 72 Year
  Sex: Female

DRUGS (6)
  1. CYMBALTA [Suspect]
     Indication: MAJOR DEPRESSION
     Dosage: 1 D/F, UNK
     Route: 048
     Dates: start: 20081216, end: 20090207
  2. CYMBALTA [Suspect]
     Dosage: 60 MG, UNK
     Route: 048
     Dates: start: 20090207, end: 20090329
  3. CYMBALTA [Suspect]
     Dosage: 30 MG, UNK
     Route: 048
     Dates: start: 20090330
  4. LEVOXYL [Concomitant]
     Indication: HYPOTHYROIDISM
     Dosage: 25 UG, UNK
     Route: 048
  5. NEUROTIN /00949202/ [Concomitant]
     Indication: RADICULOPATHY
     Dosage: 100 MG, UNK
     Route: 048
     Dates: start: 20090109
  6. FOSAMAX [Concomitant]
     Indication: OSTEOPOROSIS
     Dosage: 70 MG, UNK

REACTIONS (1)
  - ATRIAL FIBRILLATION [None]
